FAERS Safety Report 4450680-X (Version None)
Quarter: 2004Q3

REPORT INFORMATION
  Report Type: 
  Country: None (occurrence: None)
  Receive Date: 20040913
  Receipt Date: 20040913
  Transmission Date: 20050211
  Serious: Yes (Other)
  Sender: FDA-Public Use
  Company Number: None

PATIENT
  Sex: Female
  Weight: 6.3504 kg

DRUGS (2)
  1. MERCAPTOPURINE [Suspect]
     Indication: ACUTE LEUKAEMIA
  2. METHOTREXATE [Suspect]

REACTIONS (2)
  - BLOOD GLUCOSE DECREASED [None]
  - LETHARGY [None]
